FAERS Safety Report 16868684 (Version 1)
Quarter: 2019Q3

REPORT INFORMATION
  Report Type: Spontaneous
  Country: FR (occurrence: FR)
  Receive Date: 20190930
  Receipt Date: 20190930
  Transmission Date: 20191005
  Serious: Yes (Hospitalization)
  Sender: FDA-Public Use
  Company Number: FR-MYLANLABS-2019M1090149

PATIENT
  Age: 34 Year
  Sex: Female
  Weight: 109 kg

DRUGS (7)
  1. REMIFENTANIL [Suspect]
     Active Substance: REMIFENTANIL
     Indication: INDUCTION OF ANAESTHESIA
     Dosage: UNK
     Route: 040
     Dates: start: 20190419, end: 20190419
  2. ESMERON [Suspect]
     Active Substance: ROCURONIUM BROMIDE
     Indication: INDUCTION OF ANAESTHESIA
     Dosage: 50 MILLIGRAM
     Route: 040
     Dates: start: 20190419, end: 20190419
  3. DEXAMETHASONE. [Suspect]
     Active Substance: DEXAMETHASONE
     Indication: INDUCTION OF ANAESTHESIA
     Dosage: UNK
     Route: 040
     Dates: start: 20190419, end: 20190419
  4. CATAPRESSAN                        /00171102/ [Suspect]
     Active Substance: CLONIDINE HYDROCHLORIDE
     Indication: INDUCTION OF ANAESTHESIA
     Dosage: UNK
     Route: 040
     Dates: start: 20190419, end: 20190419
  5. CEFOXITIN [Suspect]
     Active Substance: CEFOXITIN SODIUM
     Indication: PROPHYLAXIS
     Dosage: UNK
     Route: 040
     Dates: start: 20190419, end: 20190419
  6. MIDAZOLAM [Suspect]
     Active Substance: MIDAZOLAM HYDROCHLORIDE
     Indication: INDUCTION OF ANAESTHESIA
     Dosage: UNK
     Route: 040
     Dates: start: 20190419, end: 20190419
  7. DIPRIVAN [Suspect]
     Active Substance: PROPOFOL
     Indication: INDUCTION OF ANAESTHESIA
     Dosage: UNK
     Route: 040
     Dates: start: 20190419, end: 20190419

REACTIONS (1)
  - Anaphylactoid shock [Recovered/Resolved]

NARRATIVE: CASE EVENT DATE: 20190419
